FAERS Safety Report 11729524 (Version 1)
Quarter: 2015Q4

REPORT INFORMATION
  Report Type: Report from Study
  Country: US (occurrence: US)
  Receive Date: 20151112
  Receipt Date: 20151112
  Transmission Date: 20160304
  Serious: Yes (Hospitalization)
  Sender: FDA-Public Use
  Company Number: US-JNJFOC-20150411899

PATIENT
  Sex: Male

DRUGS (17)
  1. LOSARTAN. [Concomitant]
     Active Substance: LOSARTAN
  2. IMBRUVICA [Suspect]
     Active Substance: IBRUTINIB
     Indication: MANTLE CELL LYMPHOMA
     Route: 048
     Dates: start: 20140517
  3. ASPIRIN. [Concomitant]
     Active Substance: ASPIRIN
  4. FENOFIBRATE. [Concomitant]
     Active Substance: FENOFIBRATE
  5. SIMVASTATIN. [Concomitant]
     Active Substance: SIMVASTATIN
  6. VITAMIN B12 [Concomitant]
     Active Substance: CYANOCOBALAMIN
  7. PRILOSEC [Concomitant]
     Active Substance: OMEPRAZOLE MAGNESIUM
  8. IMBRUVICA [Suspect]
     Active Substance: IBRUTINIB
     Indication: MANTLE CELL LYMPHOMA
     Route: 048
     Dates: start: 20151029
  9. ACYCLOVIR. [Concomitant]
     Active Substance: ACYCLOVIR
  10. LEVOTHYROXINE. [Concomitant]
     Active Substance: LEVOTHYROXINE
  11. ZEMPLAR [Concomitant]
     Active Substance: PARICALCITOL
  12. METOLAZONE. [Concomitant]
     Active Substance: METOLAZONE
  13. SODIUM BICARBONATE. [Concomitant]
     Active Substance: SODIUM BICARBONATE
  14. CALCIUM [Concomitant]
     Active Substance: CALCIUM
  15. VITAMIN D [Concomitant]
     Active Substance: CHOLECALCIFEROL
  16. CARVEDILOL. [Concomitant]
     Active Substance: CARVEDILOL
  17. POTASSIUM [Concomitant]
     Active Substance: POTASSIUM

REACTIONS (4)
  - Pulmonary oedema [Recovering/Resolving]
  - Diarrhoea [Recovered/Resolved]
  - Lung neoplasm malignant [Recovering/Resolving]
  - Drug ineffective [Unknown]

NARRATIVE: CASE EVENT DATE: 2014
